FAERS Safety Report 26175878 (Version 2)
Quarter: 2025Q4

REPORT INFORMATION
  Report Type: Spontaneous
  Country: US (occurrence: US)
  Receive Date: 20251218
  Receipt Date: 20251222
  Transmission Date: 20260118
  Serious: Yes (Other)
  Sender: APELLIS PHARMACEUTICALS
  Company Number: US-APELLIS-2025-APL-0002421

PATIENT

DRUGS (8)
  1. SYFOVRE [Suspect]
     Active Substance: PEGCETACOPLAN
     Indication: Dry age-related macular degeneration
     Route: 031
  2. REFRESH CLASSIC [Concomitant]
     Active Substance: POLYVINYL ALCOHOL\POVIDONE
     Indication: Product used for unknown indication
     Dosage: QDAY
  3. MINERALS\VITAMINS [Concomitant]
     Active Substance: MINERALS\VITAMINS
     Indication: Product used for unknown indication
     Dosage: 1 TABLET BID BY MOUTH
     Route: 048
  4. ATORVASTATIN CALCIUM [Concomitant]
     Active Substance: ATORVASTATIN CALCIUM
     Indication: Product used for unknown indication
     Dosage: 40.000MG
     Route: 048
  5. IPRATROPIUM BROMIDE [Concomitant]
     Active Substance: IPRATROPIUM BROMIDE
     Indication: Product used for unknown indication
     Dosage: 21 MCG (0.03 %) SPRAY,NON-AEROSOL:, DISP. 30 ML NR.
  6. LEVOTHYROXINE SODIUM [Concomitant]
     Active Substance: LEVOTHYROXINE SODIUM
     Indication: Product used for unknown indication
     Dosage: 50.000UG
     Route: 048
  7. METOPROLOL SUCCINATE [Concomitant]
     Active Substance: METOPROLOL SUCCINATE
     Indication: Product used for unknown indication
     Dosage: 25 MG 24 HR EXTENDED RELEASE TABLET
  8. OXYCODONE AND ACETAMINOPHEN [Concomitant]
     Active Substance: ACETAMINOPHEN\OXYCODONE HYDROCHLORIDE
     Indication: Product used for unknown indication
     Dosage: 325MG/5MG ORAL TABLET
     Route: 048

REACTIONS (13)
  - Uveitis [Unknown]
  - Uveitis [Unknown]
  - Dry age-related macular degeneration [Unknown]
  - Dry age-related macular degeneration [Unknown]
  - Vitreous detachment [Unknown]
  - Disease progression [Unknown]
  - Disease progression [Unknown]
  - Foreign body sensation in eyes [Unknown]
  - Impaired driving ability [Unknown]
  - Arcus lipoides [Unknown]
  - Arcus lipoides [Unknown]
  - Eye complication associated with device [Unknown]
  - Eye complication associated with device [Unknown]
